FAERS Safety Report 5050842-7 (Version None)
Quarter: 2006Q3

REPORT INFORMATION
  Report Type: 
  Country: None (occurrence: None)
  Receive Date: 20060710
  Receipt Date: 20060529
  Transmission Date: 20061208
  Serious: Yes (Other)
  Sender: FDA-Public Use
  Company Number: CHNY2006DE01659

PATIENT
  Age: 45 Year
  Sex: Male
  Weight: 100 kg

DRUGS (1)
  1. NICOTINELL KAUGUMMI            CHEWABLE GUM [Suspect]
     Indication: STOMATITIS
     Dosage: 16-20 MG DAILY, CHEWED
     Route: 002
     Dates: start: 20050313, end: 20060515

REACTIONS (3)
  - CHEST DISCOMFORT [None]
  - CHEST PAIN [None]
  - PAIN IN EXTREMITY [None]
